FAERS Safety Report 17583072 (Version 1)
Quarter: 2020Q1

REPORT INFORMATION
  Report Type: Spontaneous
  Country: US (occurrence: US)
  Receive Date: 20200325
  Receipt Date: 20200325
  Transmission Date: 20200409
  Serious: Yes (Death, Hospitalization, Other)
  Sender: FDA-Public Use
  Company Number: US-AUROBINDO-AUR-APL-2020-015064

PATIENT
  Sex: Female

DRUGS (1)
  1. AMIODARONE HYDROCHLORIDE 200 MG TABLET [Suspect]
     Active Substance: AMIODARONE HYDROCHLORIDE
     Indication: ATRIAL FIBRILLATION
     Dosage: UNK
     Route: 065

REACTIONS (17)
  - Pneumonia [Unknown]
  - Fatigue [Fatal]
  - Respiratory failure [Fatal]
  - Thyroid function test abnormal [Unknown]
  - Off label use [Unknown]
  - Dyspnoea [Fatal]
  - Renal failure [Fatal]
  - Renal impairment [Unknown]
  - Asthenia [Fatal]
  - Hypothyroidism [Unknown]
  - Loss of personal independence in daily activities [Unknown]
  - Pulmonary fibrosis [Fatal]
  - Chest pain [Fatal]
  - Cough [Fatal]
  - Blindness [Unknown]
  - Lung disorder [Fatal]
  - Wheezing [Fatal]

NARRATIVE: CASE EVENT DATE: 201604
